FAERS Safety Report 8166939-9 (Version None)
Quarter: 2012Q1

REPORT INFORMATION
  Report Type: 
  Country: None (occurrence: None)
  Receive Date: 20120227
  Receipt Date: 20120216
  Transmission Date: 20120608
  Serious: Yes (Death, Life-Threatening, Other)
  Sender: FDA-Public Use
  Company Number: JP-ASTELLAS-2012US001457

PATIENT
  Age: 67 Year
  Sex: Male
  Weight: 51 kg

DRUGS (9)
  1. LOBU [Suspect]
     Indication: CANCER PAIN
     Dosage: 180 MG, UID/QD
     Route: 048
     Dates: start: 20111123, end: 20111129
  2. LANSOPRAZOLE [Concomitant]
     Indication: GASTROOESOPHAGEAL REFLUX DISEASE
     Dosage: 30 MG, UID/QD
     Route: 048
     Dates: end: 20111129
  3. LEVEMIR [Concomitant]
     Indication: DIABETES MELLITUS
     Dosage: 6 IU, UID/QD
     Route: 058
  4. AMLODIPINE [Concomitant]
     Indication: HYPERTENSION
     Dosage: 5 MG, UID/QD
     Route: 048
     Dates: end: 20111130
  5. LENDORMIN [Concomitant]
     Indication: INSOMNIA
     Dosage: 0.25 MG, UID/QD
     Route: 048
     Dates: end: 20111129
  6. ERLOTINIB HYDROCHLORIDE [Suspect]
     Indication: ADENOCARCINOMA PANCREAS
     Dosage: 100 MG, UID/QD
     Route: 048
     Dates: start: 20111121, end: 20111129
  7. PURSENNID [Concomitant]
     Indication: CONSTIPATION
     Dosage: 24 MG, UID/QD
     Route: 048
     Dates: start: 20111122, end: 20111129
  8. GEMCITABINE HYDROCHLORIDE [Suspect]
     Indication: ADENOCARCINOMA PANCREAS
     Dosage: 1000 MG/M2, WEEKLY
     Route: 041
     Dates: start: 20111122, end: 20111129
  9. MAGMITT [Concomitant]
     Indication: CONSTIPATION
     Dosage: 250 MG, UID/QD
     Route: 048
     Dates: end: 20111130

REACTIONS (10)
  - PLATELET COUNT DECREASED [None]
  - ACIDOSIS [None]
  - MULTI-ORGAN FAILURE [None]
  - MALAISE [None]
  - ILEUS PARALYTIC [None]
  - DISEASE PROGRESSION [None]
  - SHOCK HAEMORRHAGIC [None]
  - WHITE BLOOD CELL COUNT DECREASED [None]
  - ASCITES [None]
  - GASTRIC HAEMORRHAGE [None]
